FAERS Safety Report 5151893-4 (Version None)
Quarter: 2006Q4

REPORT INFORMATION
  Report Type: 
  Country: None (occurrence: None)
  Receive Date: 20061108
  Receipt Date: 20061101
  Transmission Date: 20070319
  Serious: Yes (Hospitalization)
  Sender: FDA-Public Use
  Company Number: HQWYE213620JUL06

PATIENT
  Age: 52 Year
  Sex: Female

DRUGS (2)
  1. TRIQUILAR-28 (LEVONORGESTREL/ETHINYL ESTRADIOL/INERT, TABLET) [Suspect]
     Indication: ADENOMYOSIS
     Dosage: 1 TABLET 1X PER 1 DAY ORAL
     Route: 048
     Dates: start: 20040908, end: 20060703
  2. RISPERDAL [Concomitant]

REACTIONS (11)
  - ABDOMINAL PAIN UPPER [None]
  - ANOREXIA [None]
  - ANTIPHOSPHOLIPID ANTIBODIES POSITIVE [None]
  - BLOOD FIBRINOGEN INCREASED [None]
  - C-REACTIVE PROTEIN INCREASED [None]
  - FIBRIN D DIMER INCREASED [None]
  - HEADACHE [None]
  - SPLENIC VEIN THROMBOSIS [None]
  - THROMBOPHLEBITIS [None]
  - VENOUS THROMBOSIS [None]
  - WHITE BLOOD CELL COUNT INCREASED [None]
